FAERS Safety Report 20154080 (Version 1)
Quarter: 2021Q4

REPORT INFORMATION
  Report Type: Spontaneous
  Country: US (occurrence: US)
  Receive Date: 20211207
  Receipt Date: 20211207
  Transmission Date: 20220303
  Serious: No
  Sender: FDA-Public Use
  Company Number: US-PRINSTON PHARMACEUTICAL INC.-2021PRN00310

PATIENT
  Sex: Male
  Weight: 93.424 kg

DRUGS (6)
  1. RISPERIDONE [Suspect]
     Active Substance: RISPERIDONE
     Indication: Irritability
     Dosage: 2 MG, 1X/DAY (ALONG WITH 0.5 MG TABLET)
     Route: 048
  2. RISPERIDONE [Suspect]
     Active Substance: RISPERIDONE
     Indication: Aggression
  3. RISPERIDONE [Suspect]
     Active Substance: RISPERIDONE
     Indication: Irritability
     Dosage: 0.5 MG, 1X/DAY (ALONG WITH 2 MG TABLET)
     Route: 048
  4. RISPERIDONE [Suspect]
     Active Substance: RISPERIDONE
     Indication: Aggression
  5. MODERNA COVID-19 VACCINE [Suspect]
     Active Substance: ELASOMERAN
  6. CLONAZEPAM [Concomitant]
     Active Substance: CLONAZEPAM
     Dosage: 0.5 MG, 2X/DAY

REACTIONS (3)
  - Aggression [Recovered/Resolved]
  - Drug ineffective [Recovered/Resolved]
  - Product measured potency issue [Recovered/Resolved]

NARRATIVE: CASE EVENT DATE: 20210101
